FAERS Safety Report 12765965 (Version 2)
Quarter: 2016Q4

REPORT INFORMATION
  Report Type: Spontaneous
  Country: JP (occurrence: JP)
  Receive Date: 20160921
  Receipt Date: 20161006
  Transmission Date: 20170207
  Serious: Yes (Other)
  Sender: FDA-Public Use
  Company Number: JP-GLAXOSMITHKLINE-JP2016JPN136006

PATIENT
  Age: 75 Year
  Sex: Male

DRUGS (3)
  1. REQUIP [Suspect]
     Active Substance: ROPINIROLE HYDROCHLORIDE
     Indication: PARKINSON^S DISEASE
     Dosage: 8 MG, QD
     Route: 048
  2. AVOLVE [Suspect]
     Active Substance: DUTASTERIDE
     Indication: BENIGN PROSTATIC HYPERPLASIA
     Dosage: 0.5 MG, QD
     Route: 048
  3. LEVODOPA [Concomitant]
     Active Substance: LEVODOPA

REACTIONS (6)
  - Gaze palsy [Unknown]
  - Loss of consciousness [Unknown]
  - Somnolence [Unknown]
  - Amnesia [Unknown]
  - Epilepsy [Unknown]
  - Disorientation [Unknown]
